FAERS Safety Report 6943318-0 (Version None)
Quarter: 2010Q3

REPORT INFORMATION
  Report Type: 
  Country: None (occurrence: None)
  Receive Date: 20100826
  Receipt Date: 20100817
  Transmission Date: 20110219
  Serious: Yes (Other)
  Sender: FDA-Public Use
  Company Number: IN-BAXTER-2010BH021932

PATIENT
  Age: 27 Year
  Sex: Female

DRUGS (2)
  1. LACTATED RINGER'S AND DEXTROSE 5% IN PLASTIC CONTAINER [Suspect]
     Indication: POSTOPERATIVE CARE
     Route: 042
     Dates: start: 20100815, end: 20100815
  2. LACTATED RINGER'S AND DEXTROSE 5% IN PLASTIC CONTAINER [Suspect]
     Indication: DELIVERY
     Route: 042
     Dates: start: 20100815, end: 20100815

REACTIONS (2)
  - BODY TEMPERATURE INCREASED [None]
  - CHILLS [None]
